FAERS Safety Report 23661399 (Version 3)
Quarter: 2024Q2

REPORT INFORMATION
  Report Type: Spontaneous
  Country: US (occurrence: US)
  Receive Date: 20240322
  Receipt Date: 20240424
  Transmission Date: 20240716
  Serious: No
  Sender: FDA-Public Use
  Company Number: US-ABBVIE-5685162

PATIENT
  Age: 31 Year
  Sex: Female
  Weight: 150 kg

DRUGS (2)
  1. KYBELLA [Suspect]
     Active Substance: DEOXYCHOLIC ACID
     Indication: Product used for unknown indication
     Dosage: FREQUENCY TEXT: 4 TREATMENTS TOTAL?FORM SRENGTH: DEOXYCHOLIC ACID 10MG/ML
     Route: 058
     Dates: start: 201809, end: 201903
  2. KYBELLA [Suspect]
     Active Substance: DEOXYCHOLIC ACID
     Indication: Product used for unknown indication
     Dosage: TIME INTERVAL: AS NECESSARY: FORM STRENGTH: DEOXYCHOLIC ACID 10MG/ML
     Route: 058
     Dates: start: 2019, end: 2019

REACTIONS (3)
  - Skin laxity [Not Recovered/Not Resolved]
  - Contusion [Unknown]
  - Swelling [Unknown]

NARRATIVE: CASE EVENT DATE: 20190413
